FAERS Safety Report 6242354-X (Version None)
Quarter: 2009Q2

REPORT INFORMATION
  Report Type: 
  Country: None (occurrence: None)
  Receive Date: 20090624
  Receipt Date: 20090619
  Transmission Date: 20091009
  Serious: Yes (Hospitalization)
  Sender: FDA-Public Use
  Company Number: FR-WYE-G03892409

PATIENT
  Sex: Female
  Weight: 11 kg

DRUGS (7)
  1. ADVIL [Suspect]
     Indication: PYREXIA
     Dosage: ONE DOSE-FORM AS REQUIRED
     Route: 048
     Dates: start: 20090528, end: 20090606
  2. CELESTENE [Suspect]
     Route: 048
     Dates: start: 20090601, end: 20090603
  3. JOSACIN [Concomitant]
     Dosage: UNKNOWN
     Route: 048
     Dates: start: 20090601, end: 20090601
  4. TOPLEXIL [Suspect]
     Indication: COUGH
     Route: 048
     Dates: start: 20090529, end: 20090531
  5. DOLIPRANE [Concomitant]
     Indication: PYREXIA
     Dosage: UNKNOWN
     Route: 048
     Dates: start: 20090501
  6. NUREFLEX [Suspect]
     Indication: PYREXIA
     Dosage: ONE DOSE-FORM AS REQUIRED
     Route: 048
     Dates: start: 20090601, end: 20090606
  7. HELICIDINE [Suspect]
     Indication: COUGH
     Route: 048
     Dates: start: 20090529, end: 20090531

REACTIONS (4)
  - CONDITION AGGRAVATED [None]
  - INFECTION [None]
  - OVERDOSE [None]
  - PNEUMONIA PNEUMOCOCCAL [None]
